FAERS Safety Report 13708017 (Version 3)
Quarter: 2017Q3

REPORT INFORMATION
  Report Type: Spontaneous
  Country: US (occurrence: US)
  Receive Date: 20170630
  Receipt Date: 20170816
  Transmission Date: 20171127
  Serious: No
  Sender: FDA-Public Use
  Company Number: PHEH2017US018082

PATIENT
  Age: 83 Year
  Sex: Female

DRUGS (1)
  1. EXELON PATCH [Suspect]
     Active Substance: RIVASTIGMINE
     Indication: PRODUCT USED FOR UNKNOWN INDICATION
     Dosage: 13.3 MG, QD
     Route: 062

REACTIONS (5)
  - Scratch [Unknown]
  - Product adhesion issue [Unknown]
  - Drug ineffective [Unknown]
  - Application site haemorrhage [Unknown]
  - Erythema [Unknown]

NARRATIVE: CASE EVENT DATE: 20170615
